FAERS Safety Report 6326669-2 (Version None)
Quarter: 2009Q3

REPORT INFORMATION
  Report Type: 
  Country: None (occurrence: None)
  Receive Date: 20090825
  Receipt Date: 20090812
  Transmission Date: 20100115
  Serious: Yes (Other)
  Sender: FDA-Public Use
  Company Number: MT-PFIZER INC-2009249166

PATIENT
  Age: 80 Year

DRUGS (4)
  1. LYRICA [Suspect]
     Indication: FACIAL NEURALGIA
     Dosage: 150 MG, 1X/DAY
     Route: 048
     Dates: start: 20090602
  2. COVERSYL [Concomitant]
     Dosage: 2 MG, 1X/DAY
  3. VASTAREL [Concomitant]
     Dosage: UNK
  4. PAROXETINE [Concomitant]
     Dosage: 20 MG, 1X/DAY

REACTIONS (1)
  - DEAFNESS [None]
